FAERS Safety Report 4502348-9 (Version None)
Quarter: 2004Q4

REPORT INFORMATION
  Report Type: 
  Country: None (occurrence: None)
  Receive Date: 20041110
  Receipt Date: 20041102
  Transmission Date: 20050328
  Serious: Yes (Other)
  Sender: FDA-Public Use
  Company Number: STA-AE-04-MTX-530

PATIENT
  Age: 66 Year
  Sex: Female

DRUGS (9)
  1. METHOTREXATE [Suspect]
     Dosage: 5 MG 1X PER 1 WK, UNK
     Route: 065
     Dates: start: 20030701
  2. HUMIRA [Suspect]
     Dosage: UNK
     Route: 065
     Dates: start: 20040301, end: 20040517
  3. PREDNISOLONE [Suspect]
     Dosage: 5 MG, UNK
     Route: 065
     Dates: end: 20040606
  4. PREDNISOLONE [Suspect]
     Dosage: 10 MG, UNK
     Route: 065
     Dates: start: 20040607, end: 20040616
  5. IBUPROF (IBUPROFEN) [Concomitant]
  6. OMEPRAZOLE SODIUM (OMEPRAZOLE SODIUM) [Concomitant]
  7. CALCIMAGON (CALCIUM CARBONATE/COLECALCIFEROL) [Concomitant]
  8. FOSAMAX [Concomitant]
  9. COMBAREN (CODEINE PHOSPHATE/DICLOFENAC SODIUM) [Concomitant]

REACTIONS (2)
  - BRONCHOPNEUMONIA [None]
  - REFUSAL OF TREATMENT BY PATIENT [None]
